FAERS Safety Report 6534910-6 (Version None)
Quarter: 2010Q1

REPORT INFORMATION
  Report Type: 
  Country: None (occurrence: None)
  Receive Date: 20100112
  Receipt Date: 20091230
  Transmission Date: 20100710
  Serious: Yes (Life-Threatening, Hospitalization, Disabling, Other)
  Sender: FDA-Public Use
  Company Number: GB-WATSON-2008-07676

PATIENT

DRUGS (2)
  1. MIRTAZAPINE [Suspect]
     Indication: PSYCHOMOTOR RETARDATION
     Dosage: 45 MG, QID
     Route: 065
     Dates: start: 20080123, end: 20080212
  2. RISPERIDONE [Suspect]
     Indication: BIPOLAR DISORDER
     Dosage: 62.5 MG, UNK
     Route: 030
     Dates: start: 20071102, end: 20080124

REACTIONS (11)
  - BLOOD PRESSURE FLUCTUATION [None]
  - CONFUSIONAL STATE [None]
  - HYPERHIDROSIS [None]
  - HYPERTHERMIA [None]
  - HYPERTONIA [None]
  - LOSS OF CONSCIOUSNESS [None]
  - MUSCLE RIGIDITY [None]
  - NEUROLEPTIC MALIGNANT SYNDROME [None]
  - NUCHAL RIGIDITY [None]
  - PSYCHOMOTOR RETARDATION [None]
  - SEROTONIN SYNDROME [None]
